FAERS Safety Report 8138717 (Version 2)
Quarter: 2013Q2

REPORT INFORMATION
  Report Type: Spontaneous
  Country: US (occurrence: US)
  Receive Date: 20110915
  Receipt Date: 20130624
  Transmission Date: 20140414
  Serious: Yes (Hospitalization)
  Sender: FDA-Public Use
  Company Number: US-US-EMD SERONO, INC.-7082029

PATIENT
  Sex: Female
  Weight: 73 kg

DRUGS (1)
  1. REBIF [Suspect]
     Indication: MULTIPLE SCLEROSIS
     Route: 058
     Dates: start: 20110801

REACTIONS (1)
  - Cardiac valve disease [Recovering/Resolving]
